FAERS Safety Report 8323221-4 (Version None)
Quarter: 2012Q2

REPORT INFORMATION
  Report Type: 
  Country: None (occurrence: None)
  Receive Date: 20120430
  Receipt Date: 20120420
  Transmission Date: 20120825
  Serious: Yes (Other)
  Sender: FDA-Public Use
  Company Number: US-ABBOTT-12P-163-0927644-00

PATIENT
  Sex: Female

DRUGS (2)
  1. KALETRA [Suspect]
     Indication: MATERNAL EXPOSURE TIMING UNSPECIFIED
     Route: 064
  2. TRUVADA [Suspect]
     Indication: MATERNAL EXPOSURE TIMING UNSPECIFIED
     Route: 064

REACTIONS (5)
  - HIV TEST POSITIVE [None]
  - SMALL FOR DATES BABY [None]
  - FOETAL MALNUTRITION [None]
  - MATERNAL USE OF ILLICIT DRUGS [None]
  - FOETAL EXPOSURE DURING PREGNANCY [None]
